FAERS Safety Report 5648096-3 (Version None)
Quarter: 2008Q1

REPORT INFORMATION
  Report Type: 
  Country: None (occurrence: None)
  Receive Date: 20080229
  Receipt Date: 20080229
  Transmission Date: 20080703
  Serious: No
  Sender: FDA-Public Use
  Company Number: None

PATIENT
  Sex: Female
  Weight: 72.5755 kg

DRUGS (1)
  1. VYTORIN [Suspect]
     Indication: BLOOD CHOLESTEROL INCREASED
     Dosage: 40 ML DAILY
     Dates: start: 20041201, end: 20071201

REACTIONS (7)
  - FATIGUE [None]
  - HYPOAESTHESIA [None]
  - MIGRAINE [None]
  - NEUROPATHY PERIPHERAL [None]
  - PARAESTHESIA [None]
  - PERIPHERAL COLDNESS [None]
  - THERMAL BURN [None]
